FAERS Safety Report 8242578-6 (Version None)
Quarter: 2012Q1

REPORT INFORMATION
  Report Type: 
  Country: None (occurrence: None)
  Receive Date: 20120329
  Receipt Date: 20120322
  Transmission Date: 20120608
  Serious: Yes (Other)
  Sender: FDA-Public Use
  Company Number: PHHY2012MT002746

PATIENT
  Sex: Female

DRUGS (2)
  1. FORMOTEROL FUMARATE [Suspect]
     Indication: ASTHMA
  2. ONBREZ [Suspect]
     Indication: ASTHMA
     Dates: start: 20120101, end: 20120101

REACTIONS (1)
  - TREMOR [None]
